FAERS Safety Report 9168230 (Version 1)
Quarter: 2013Q1

REPORT INFORMATION
  Report Type: Spontaneous
  Country: FR (occurrence: None)
  Receive Date: 20130304
  Receipt Date: 20130304
  Transmission Date: 20140127
  Serious: Yes (Hospitalization)
  Sender: FDA-Public Use
  Company Number: 0215129

PATIENT
  Age: 61 Year
  Sex: Male

DRUGS (4)
  1. TACHOSIL [Suspect]
     Dosage: 1 DAYS
     Dates: start: 20100819, end: 20100819
  2. ORACILLINE (PHENOXYMETHYLPENICILLIN) (1000000 IU (INTERNATIONAL UNIT)) [Concomitant]
  3. INNOHEP (HEPARIN-FRACTION, SODIUM SALT) (3500 IU (INTERNATIONAL UNIT), SOLUTION [Concomitant]
  4. KARDEGIC (ACETYLSALICYLATE LYSINE) (160 MILLIGRAM, POWDER) [Concomitant]

REACTIONS (1)
  - Abdominal pain [None]
